FAERS Safety Report 4275919-5 (Version None)
Quarter: 2004Q1

REPORT INFORMATION
  Report Type: 
  Country: None (occurrence: None)
  Receive Date: 20040121
  Receipt Date: 20030312
  Transmission Date: 20041129
  Serious: No
  Sender: FDA-Public Use
  Company Number: US-GLAXOSMITHKLINE-A0400050A

PATIENT
  Age: 60 Year
  Sex: Female

DRUGS (3)
  1. VALTREX [Suspect]
     Dosage: 1G PER DAY
     Route: 048
     Dates: start: 19990101
  2. STEROIDS [Concomitant]
     Indication: COLITIS
  3. PREDNISONE [Concomitant]
     Indication: PNEUMONIA

REACTIONS (1)
  - DRUG INEFFECTIVE [None]
